FAERS Safety Report 4697788-1 (Version None)
Quarter: 2005Q2

REPORT INFORMATION
  Report Type: 
  Country: None (occurrence: None)
  Receive Date: 20050621
  Receipt Date: 20050607
  Transmission Date: 20051028
  Serious: Yes (Hospitalization)
  Sender: FDA-Public Use
  Company Number: 230094M05USA

PATIENT
  Age: 30 Year
  Sex: Female
  Weight: 102.3 kg

DRUGS (2)
  1. REBIF [Suspect]
     Indication: MULTIPLE SCLEROSIS
     Dosage: 44 MCG, 3 IN 1 WEEKS, SUBCUTANEOUS
     Route: 058
     Dates: start: 20030201, end: 20041208
  2. ZOLOFT (SERTRALINE HYDRCHLORIDE) [Concomitant]

REACTIONS (6)
  - ALCOHOL USE [None]
  - BIPOLAR DISORDER [None]
  - DEPRESSION [None]
  - INTENTIONAL MISUSE [None]
  - OVERDOSE [None]
  - SUICIDE ATTEMPT [None]
